FAERS Safety Report 8465162-8 (Version None)
Quarter: 2012Q2

REPORT INFORMATION
  Report Type: 
  Country: None (occurrence: None)
  Receive Date: 20120626
  Receipt Date: 20120618
  Transmission Date: 20120825
  Serious: Yes (Hospitalization)
  Sender: FDA-Public Use
  Company Number: PHHY2012DE031596

PATIENT
  Sex: Male
  Weight: 90 kg

DRUGS (4)
  1. CANDESARTAN CILEXETIL [Concomitant]
     Indication: HYPERTENSION
     Dosage: 16 MG, PER DAY
     Route: 048
  2. IBUPROFEN [Concomitant]
     Dosage: UNK UKN, UNK
  3. HYDROCHLOROTHIAZIDE [Concomitant]
     Dosage: 25 MG, PER DAY
     Route: 048
  4. IMATINIB MESYLATE [Suspect]
     Indication: CHRONIC MYELOID LEUKAEMIA
     Dosage: 400 MG, DAILY
     Route: 048
     Dates: start: 20100901

REACTIONS (5)
  - INTERVERTEBRAL DISC PROTRUSION [None]
  - ANGIOLIPOMA [None]
  - PAIN [None]
  - LIGAMENT DISORDER [None]
  - MUSCLE TIGHTNESS [None]
